FAERS Safety Report 25355423 (Version 1)
Quarter: 2025Q2

REPORT INFORMATION
  Report Type: Spontaneous
  Country: US (occurrence: US)
  Receive Date: 20250524
  Receipt Date: 20250524
  Transmission Date: 20250716
  Serious: Yes (Other)
  Sender: BRISTOL-MYERS SQUIBB COMPANY
  Company Number: US-BRISTOL-MYERS SQUIBB COMPANY-2025-070785

PATIENT
  Sex: Male

DRUGS (1)
  1. THALOMID [Suspect]
     Active Substance: THALIDOMIDE
     Indication: Medulloblastoma recurrent
     Dates: end: 20250428

REACTIONS (5)
  - Deafness [Not Recovered/Not Resolved]
  - Off label use [Unknown]
  - Toxicity to various agents [Unknown]
  - Muscular weakness [Not Recovered/Not Resolved]
  - Ataxia [Not Recovered/Not Resolved]
